FAERS Safety Report 5001898-9 (Version None)
Quarter: 2006Q2

REPORT INFORMATION
  Report Type: 
  Country: None (occurrence: None)
  Receive Date: 20060512
  Receipt Date: 20060512
  Transmission Date: 20061013
  Serious: Yes (Hospitalization)
  Sender: FDA-Public Use
  Company Number: None

PATIENT
  Age: 67 Year
  Sex: Male

DRUGS (14)
  1. FUROSEMIDE [Suspect]
     Indication: CARDIAC FAILURE CONGESTIVE
     Dosage: 120MG PO BID
     Route: 048
     Dates: start: 20060131, end: 20060308
  2. ENALAPRIL [Suspect]
     Indication: CARDIAC FAILURE CONGESTIVE
     Dosage: 2.5MG PO QD
     Route: 048
     Dates: start: 20060131, end: 20060308
  3. ASPIRIN [Concomitant]
  4. CARVEDILOL [Concomitant]
  5. CLOPIDOGREL BISULFATE [Concomitant]
  6. LANOXIN [Concomitant]
  7. ENALAPRIL MALEATE [Concomitant]
  8. EZETIMIBE [Concomitant]
  9. ENDOCRINE [Concomitant]
  10. FERROUS SULFATE TAB [Concomitant]
  11. FLUOXETINE HCL [Concomitant]
  12. FUROSEMIDE [Concomitant]
  13. HYDRALAZINE HCL [Concomitant]
  14. HYDROCHLOROTHIAZIDE [Concomitant]

REACTIONS (4)
  - ASTHENIA [None]
  - BLOOD CREATININE INCREASED [None]
  - CARDIAC FAILURE CONGESTIVE [None]
  - HYPOTENSION [None]
